FAERS Safety Report 4711923-8 (Version None)
Quarter: 2005Q3

REPORT INFORMATION
  Report Type: 
  Country: None (occurrence: None)
  Receive Date: 20050711
  Receipt Date: 20050711
  Transmission Date: 20060218
  Serious: Yes (Hospitalization)
  Sender: FDA-Public Use
  Company Number: None

PATIENT
  Age: 75 Year
  Sex: Male
  Weight: 66.2252 kg

DRUGS (6)
  1. TAXOTERE [Suspect]
     Indication: NON-SMALL CELL LUNG CANCER
     Dosage: 130 MG IV 9 DOSES
     Route: 042
     Dates: start: 20050307, end: 20050531
  2. CARBOPLATIN [Suspect]
     Indication: NON-SMALL CELL LUNG CANCER
     Dosage: 430 MG IV 9 DOSES
     Route: 042
     Dates: start: 20050307, end: 20050531
  3. LEXAPRO [Concomitant]
  4. FLOMAX [Concomitant]
  5. ZOCOR [Concomitant]
  6. CARDIZEM [Concomitant]

REACTIONS (2)
  - DYSPNOEA [None]
  - SYNCOPE [None]
